FAERS Safety Report 5502029-9 (Version None)
Quarter: 2007Q4

REPORT INFORMATION
  Report Type: 
  Country: None (occurrence: None)
  Receive Date: 20071030
  Receipt Date: 20071022
  Transmission Date: 20080405
  Serious: Yes (Other)
  Sender: FDA-Public Use
  Company Number: B0492015A

PATIENT
  Age: 43 Year
  Sex: Male

DRUGS (3)
  1. NIQUITIN CQ CLEAR 14MG [Suspect]
     Dosage: 14MG PER DAY
     Route: 062
     Dates: start: 20071009, end: 20071013
  2. TEGRETOL [Concomitant]
     Dosage: 400MG TWICE PER DAY
  3. RISPERDAL [Concomitant]

REACTIONS (4)
  - AGGRESSION [None]
  - AGITATION [None]
  - PERSONALITY CHANGE [None]
  - PHARMACEUTICAL PRODUCT COMPLAINT [None]
